FAERS Safety Report 4603772-6 (Version None)
Quarter: 2005Q1

REPORT INFORMATION
  Report Type: 
  Country: None (occurrence: None)
  Receive Date: 20050308
  Receipt Date: 20050308
  Transmission Date: 20050727
  Serious: Yes (Other)
  Sender: FDA-Public Use
  Company Number: None

PATIENT
  Sex: Male
  Weight: 102.7 kg

DRUGS (7)
  1. CYCLOPHOSPHAMIDE [Suspect]
     Dosage: 650 MG/M2 IV OVER 30 MIN DAYS 1, 15, 29
     Route: 042
     Dates: start: 20041231, end: 20050222
  2. CYTARABINE [Suspect]
     Dosage: 75 MG/M2 IV OVER 30 MIN QD ON DAYS 1-4, 8-11, 15-18, AND 22-25
     Dates: start: 20041231, end: 20050225
  3. MERCAPTOPURINE [Suspect]
     Dosage: 60 MG/M2 PO QD FOR 28 DAYS
     Route: 048
     Dates: start: 20041231, end: 20050224
  4. METHOTREXATE [Suspect]
     Dosage: 12.5 MG IT ON DAYS 1, 8 , 15, 22
     Route: 039
     Dates: start: 20041231, end: 20050222
  5. DANUORUBICIN [Concomitant]
  6. ASPARAGINASE [Concomitant]
  7. VINCRISTINE SULFATE [Concomitant]

REACTIONS (4)
  - BLOOD CULTURE POSITIVE [None]
  - ENTEROCOCCAL INFECTION [None]
  - PYREXIA [None]
  - STAPHYLOCOCCAL INFECTION [None]
